FAERS Safety Report 15653635 (Version 1)
Quarter: 2018Q4

REPORT INFORMATION
  Report Type: Spontaneous
  Country: US (occurrence: US)
  Receive Date: 20181124
  Receipt Date: 20181124
  Transmission Date: 20190205
  Serious: No
  Sender: FDA-Public Use
  Company Number: US-JNJFOC-20181102322

PATIENT
  Age: 55 Year
  Sex: Female

DRUGS (3)
  1. GABAPENTIN. [Concomitant]
     Active Substance: GABAPENTIN
     Dosage: TOOK 400MG THREE TIMES A DAY FOR 4 DAYS
     Route: 065
  2. ELMIRON [Suspect]
     Active Substance: PENTOSAN POLYSULFATE SODIUM
     Indication: CYSTITIS
     Route: 048
  3. ELMIRON [Suspect]
     Active Substance: PENTOSAN POLYSULFATE SODIUM
     Indication: CYSTITIS
     Route: 048
     Dates: start: 201810, end: 201810

REACTIONS (4)
  - Headache [Unknown]
  - Diarrhoea [Unknown]
  - Decreased appetite [Unknown]
  - Wrong product administered [Unknown]

NARRATIVE: CASE EVENT DATE: 2018
